FAERS Safety Report 8959700 (Version 1)
Quarter: 2012Q4

REPORT INFORMATION
  Report Type: 
  Country: JP (occurrence: JP)
  Receive Date: 20121212
  Receipt Date: 20121212
  Transmission Date: 20130627
  Serious: Yes (Life-Threatening, Hospitalization)
  Sender: FDA-Public Use
  Company Number: JP-AMGEN-JPNSP2012079171

PATIENT
  Age: 55 Year
  Sex: Female
  Weight: 43 kg

DRUGS (8)
  1. VECTIBIX [Suspect]
     Indication: RECTAL CANCER
     Dosage: 295 mg, q2wk
     Route: 041
     Dates: start: 20120612, end: 20121022
  2. TOPOTECIN [Suspect]
     Indication: RECTAL CANCER
     Dosage: 110 mg, q2wk
     Route: 041
     Dates: start: 20120612, end: 20121022
  3. 5-FU [Suspect]
     Indication: RECTAL CANCER
     Dosage: 2300 mg, q2wk
     Route: 041
     Dates: start: 20101222, end: 20121024
  4. LEVOFOLINATE [Concomitant]
     Indication: RECTAL CANCER
     Dosage: UNK UNK, q2wk
     Route: 041
     Dates: start: 20101222, end: 20121022
  5. NAVOBAN [Concomitant]
     Indication: PROPHYLAXIS OF NAUSEA AND VOMITING
     Dosage: 5 mg, q2wk
     Route: 048
     Dates: start: 20101222, end: 20121023
  6. RINDERON [Concomitant]
     Indication: PROPHYLAXIS OF NAUSEA AND VOMITING
     Dosage: 0.5 mg, q2wk
     Route: 048
     Dates: start: 20101222, end: 20121024
  7. IRINOTECAN [Concomitant]
     Dosage: UNK
     Dates: start: 20120612
  8. LEUCOVORIN /00566701/ [Concomitant]
     Dosage: UNK
     Dates: start: 20120612

REACTIONS (7)
  - Skin infection [Recovering/Resolving]
  - Rash [Recovering/Resolving]
  - Staphylococcal skin infection [None]
  - Abasia [None]
  - Abscess neck [None]
  - Decreased appetite [None]
  - Streptococcal infection [None]
